FAERS Safety Report 10299307 (Version 3)
Quarter: 2018Q4

REPORT INFORMATION
  Report Type: Spontaneous
  Country: US (occurrence: US)
  Receive Date: 20140711
  Receipt Date: 20181218
  Transmission Date: 20190204
  Serious: Yes (Other)
  Sender: FDA-Public Use
  Company Number: US-TEVA-494202USA

PATIENT
  Age: 34 Year
  Sex: Female
  Weight: 69.01 kg

DRUGS (2)
  1. TAKE ACTION [Suspect]
     Active Substance: LEVONORGESTREL
     Indication: ABORTION INDUCED
     Dosage: 1.5 MILLIGRAM DAILY;
     Route: 048
     Dates: start: 20140709, end: 20140709
  2. METRONIDAZOLE. [Concomitant]
     Active Substance: METRONIDAZOLE
     Indication: URINARY TRACT INFECTION
     Dates: start: 201406

REACTIONS (5)
  - Abortion spontaneous [Recovered/Resolved]
  - Intentional product misuse [Unknown]
  - Vaginal haemorrhage [Recovered/Resolved]
  - Pelvic pain [Recovered/Resolved]
  - Maternal exposure before pregnancy [Unknown]

NARRATIVE: CASE EVENT DATE: 20140709
